FAERS Safety Report 16389937 (Version 1)
Quarter: 2019Q2

REPORT INFORMATION
  Report Type: Spontaneous
  Country: JP (occurrence: JP)
  Receive Date: 20190604
  Receipt Date: 20190604
  Transmission Date: 20190711
  Serious: Yes (Death, Hospitalization, Other)
  Sender: FDA-Public Use
  Company Number: JP-ASTRAZENECA-2018SF70487

PATIENT
  Age: 61 Year
  Sex: Male
  Weight: 51 kg

DRUGS (1)
  1. IMFINZI [Suspect]
     Active Substance: DURVALUMAB
     Indication: NON-SMALL CELL LUNG CANCER
     Route: 041
     Dates: start: 20181018, end: 20181213

REACTIONS (8)
  - Interstitial lung disease [Fatal]
  - Malignant neoplasm progression [Fatal]
  - Respiratory failure [Unknown]
  - Cancer pain [Unknown]
  - Tumour haemorrhage [Fatal]
  - Metastases to bone [Unknown]
  - White blood cell count increased [Unknown]
  - Haemoptysis [Fatal]

NARRATIVE: CASE EVENT DATE: 20181213
